FAERS Safety Report 7313465-2 (Version None)
Quarter: 2011Q1

REPORT INFORMATION
  Report Type: 
  Country: None (occurrence: None)
  Receive Date: 20110225
  Receipt Date: 20110215
  Transmission Date: 20110831
  Serious: No
  Sender: FDA-Public Use
  Company Number: US-PFIZER INC-2010141911

PATIENT
  Sex: Male
  Weight: 82 kg

DRUGS (3)
  1. OPTIVE [Concomitant]
     Dosage: UNK
  2. XALATAN [Suspect]
     Indication: GLAUCOMA
     Dosage: UNK, AT BEDTIME
     Route: 047
     Dates: start: 20100915, end: 20101028
  3. SYSTANE [Concomitant]
     Dosage: UNK, EACH EYE
     Dates: end: 20101028

REACTIONS (4)
  - OCULAR HYPERAEMIA [None]
  - EYELID DISORDER [None]
  - EYE PRURITUS [None]
  - EYE IRRITATION [None]
